FAERS Safety Report 19012662 (Version 1)
Quarter: 2021Q1

REPORT INFORMATION
  Report Type: Spontaneous
  Country: US (occurrence: US)
  Receive Date: 20210315
  Receipt Date: 20210315
  Transmission Date: 20210420
  Serious: No
  Sender: FDA-Public Use
  Company Number: None

PATIENT
  Age: 62 Year
  Sex: Female
  Weight: 132 kg

DRUGS (1)
  1. LISINOPRIL (LISINOPRIL 10MG TAB) [Suspect]
     Active Substance: LISINOPRIL
     Route: 048
     Dates: start: 20210128, end: 20210216

REACTIONS (1)
  - Angioedema [None]

NARRATIVE: CASE EVENT DATE: 20210216
